FAERS Safety Report 6346784-7 (Version None)
Quarter: 2009Q3

REPORT INFORMATION
  Report Type: 
  Country: None (occurrence: None)
  Receive Date: 20090910
  Receipt Date: 20070523
  Transmission Date: 20100115
  Serious: Yes (Hospitalization)
  Sender: FDA-Public Use
  Company Number: US-ASTRAZENECA-2006UW26491

PATIENT
  Age: 17050 Day
  Sex: Female
  Weight: 83.9 kg

DRUGS (18)
  1. SEROQUEL [Suspect]
     Indication: DEPRESSION
     Route: 048
     Dates: start: 20010201
  2. SEROQUEL [Suspect]
     Route: 048
     Dates: start: 20050721
  3. OLANZAPINE [Concomitant]
     Dates: start: 20010101
  4. ATENOLOL [Concomitant]
     Indication: HYPERTENSION
     Dates: start: 20041001
  5. DYAZIDE [Concomitant]
     Indication: HYPERTENSION
     Dates: start: 20041001
  6. VICODIN [Concomitant]
     Indication: FIBROMYALGIA
     Dates: start: 20001112
  7. LISINOPRIL [Concomitant]
     Indication: HYPERTENSION
     Dates: start: 20041001
  8. PROTONIX [Concomitant]
     Indication: GASTROOESOPHAGEAL REFLUX DISEASE
  9. MIRTAZAPINE [Concomitant]
     Dosage: 15-30 MG
     Dates: start: 20050804
  10. CELEXA [Concomitant]
     Indication: DEPRESSION
     Dosage: 20-40 MG
     Dates: start: 20041001
  11. NORTRIPTYLINE HCL [Concomitant]
     Indication: DEPRESSION
  12. FIORICET [Concomitant]
     Indication: MIGRAINE
     Dosage: PRN
     Dates: start: 20041001
  13. VITAMIN B-12 [Concomitant]
     Dosage: ONCE DAILY
     Dates: start: 20041001
  14. LOMOTIL [Concomitant]
     Indication: DIARRHOEA
     Dosage: PRN
     Dates: start: 20041001
  15. BEXTRA [Concomitant]
     Dates: start: 20041001
  16. PAXIL [Concomitant]
     Dates: start: 20041001
  17. NEXIUM [Concomitant]
     Dates: start: 20041001
  18. ETODOLAC [Concomitant]
     Dosage: 200 MG EVERY 6-9 HRS
     Dates: start: 20050822

REACTIONS (5)
  - GLUCOSE TOLERANCE IMPAIRED [None]
  - HYPERGLYCAEMIA [None]
  - HYPERLIPIDAEMIA [None]
  - MAJOR DEPRESSION [None]
  - TYPE 2 DIABETES MELLITUS [None]
